FAERS Safety Report 20898402 (Version 1)
Quarter: 2022Q2

REPORT INFORMATION
  Report Type: Spontaneous
  Country: US (occurrence: US)
  Receive Date: 20220601
  Receipt Date: 20220601
  Transmission Date: 20220721
  Serious: No
  Sender: FDA-Public Use
  Company Number: US-Encube-000166

PATIENT
  Age: 60 Year
  Sex: Female

DRUGS (1)
  1. TAVABOROLE [Suspect]
     Active Substance: TAVABOROLE
     Indication: Onychomycosis
     Route: 061

REACTIONS (1)
  - Application site dryness [Not Recovered/Not Resolved]
